FAERS Safety Report 18475324 (Version 1)
Quarter: 2020Q4

REPORT INFORMATION
  Report Type: Spontaneous
  Country: US (occurrence: US)
  Receive Date: 20201106
  Receipt Date: 20201106
  Transmission Date: 20210114
  Serious: No
  Sender: FDA-Public Use
  Company Number: US-PFIZER INC-2020429227

PATIENT
  Age: 65 Year
  Sex: Male

DRUGS (1)
  1. XELJANZ [Suspect]
     Active Substance: TOFACITINIB CITRATE
     Indication: COLITIS ULCERATIVE
     Dosage: 5 MG, 2X/DAY (1 PO (PER ORAL) BID (TWICE A DAY))
     Route: 048
     Dates: start: 201901

REACTIONS (4)
  - Hepatic cyst [Unknown]
  - Condition aggravated [Unknown]
  - Renal pain [Unknown]
  - Flank pain [Unknown]
